FAERS Safety Report 19504427 (Version 2)
Quarter: 2021Q3

REPORT INFORMATION
  Report Type: Report from Study
  Country: ES (occurrence: ES)
  Receive Date: 20210708
  Receipt Date: 20210723
  Transmission Date: 20211014
  Serious: Yes (Death, Other)
  Sender: FDA-Public Use
  Company Number: ES-JAZZ-2021-ES-012002

PATIENT
  Age: 57 Year

DRUGS (1)
  1. DEFITELIO [Suspect]
     Active Substance: DEFIBROTIDE SODIUM
     Indication: VENOOCCLUSIVE DISEASE
     Dosage: UNKNOWN DOSE, UNKNOWN FREQUENCY
     Route: 065
     Dates: start: 20210419, end: 20210510

REACTIONS (1)
  - Death [Fatal]
